FAERS Safety Report 15813832 (Version 1)
Quarter: 2019Q1

REPORT INFORMATION
  Report Type: Spontaneous
  Country: NO (occurrence: NO)
  Receive Date: 20190111
  Receipt Date: 20190111
  Transmission Date: 20190417
  Serious: Yes (Disabling)
  Sender: FDA-Public Use
  Company Number: NO-SEPTODONT-201804971

PATIENT
  Age: 25 Year
  Sex: Male
  Weight: 83 kg

DRUGS (1)
  1. ARTICAINE HYDROCHLORIDE AND EPINEPHRINE [Suspect]
     Active Substance: ARTICAINE HYDROCHLORIDE\EPINEPHRINE BITARTRATE
     Indication: PRODUCT USED FOR UNKNOWN INDICATION
     Route: 004

REACTIONS (13)
  - Ear pain [Unknown]
  - Speech disorder [Unknown]
  - Pain [Unknown]
  - Facial pain [Unknown]
  - Ear discomfort [Unknown]
  - Lip pain [Unknown]
  - Paraesthesia [Not Recovered/Not Resolved]
  - Pain in jaw [Unknown]
  - Nerve injury [Not Recovered/Not Resolved]
  - Musculoskeletal stiffness [Unknown]
  - Hypoaesthesia oral [Unknown]
  - Glossodynia [Unknown]
  - Dysgeusia [Unknown]

NARRATIVE: CASE EVENT DATE: 20120101
